FAERS Safety Report 7377905-5 (Version None)
Quarter: 2011Q1

REPORT INFORMATION
  Report Type: 
  Country: None (occurrence: None)
  Receive Date: 20110328
  Receipt Date: 20110324
  Transmission Date: 20110831
  Serious: Yes (Hospitalization)
  Sender: FDA-Public Use
  Company Number: JP-JNJFOC-20100608450

PATIENT
  Sex: Female
  Weight: 65 kg

DRUGS (20)
  1. DOXIL [Suspect]
     Route: 042
  2. DECADRON [Concomitant]
     Indication: PROPHYLAXIS
     Route: 042
  3. LOXONIN [Concomitant]
     Indication: INTERSTITIAL LUNG DISEASE
     Dosage: AS NEEDED.
     Route: 048
  4. ASCORBIC ACID [Concomitant]
     Route: 065
  5. BROTIZOLAM [Concomitant]
     Route: 065
  6. DOXIL [Suspect]
     Indication: OVARIAN CANCER RECURRENT
     Route: 042
  7. SEROTONE [Concomitant]
     Indication: PROPHYLAXIS
     Route: 042
  8. SEROTONE [Concomitant]
     Route: 042
  9. KERATINAMIN [Concomitant]
     Indication: PIGMENTATION DISORDER
     Route: 061
  10. MUCOSTA [Concomitant]
     Indication: PROPHYLAXIS
     Route: 048
  11. DECADRON [Concomitant]
     Route: 048
  12. DECADRON [Concomitant]
     Route: 048
  13. DECADRON [Concomitant]
     Route: 048
  14. PYDOXAL [Concomitant]
     Indication: STOMATITIS
     Route: 048
  15. CINAL [Concomitant]
     Indication: PIGMENTATION DISORDER
     Route: 048
  16. LOPEMIN [Concomitant]
     Indication: PROPHYLAXIS
     Route: 048
  17. DECADRON [Concomitant]
     Route: 048
  18. DECADRON [Concomitant]
     Route: 042
  19. AZUNOL [Concomitant]
     Indication: STOMATITIS
     Route: 048
  20. FOIPAN [Concomitant]
     Indication: STOMATITIS
     Route: 002

REACTIONS (1)
  - INTERSTITIAL LUNG DISEASE [None]
